FAERS Safety Report 14648290 (Version 3)
Quarter: 2018Q2

REPORT INFORMATION
  Report Type: Spontaneous
  Country: US (occurrence: US)
  Receive Date: 20180316
  Receipt Date: 20180424
  Transmission Date: 20180711
  Serious: No
  Sender: FDA-Public Use
  Company Number: PHHY2018US039362

PATIENT
  Age: 67 Year
  Sex: Female
  Weight: 59 kg

DRUGS (2)
  1. SYSTANE ULTRA [Suspect]
     Active Substance: POLYETHYLENE GLYCOL 400\PROPYLENE GLYCOL
     Dosage: 1 GTT, BID (MORNING + NIGHT)
     Route: 047
     Dates: start: 201801, end: 20180303
  2. SYSTANE ULTRA [Suspect]
     Active Substance: POLYETHYLENE GLYCOL 400\PROPYLENE GLYCOL
     Indication: DRY EYE
     Dosage: 1 GTT, BID (MORNING + NIGHT)
     Route: 047
     Dates: start: 201711, end: 201712

REACTIONS (3)
  - Eye irritation [Recovered/Resolved]
  - Product quality issue [Unknown]
  - Eye pain [Recovered/Resolved]
